FAERS Safety Report 5804596-4 (Version None)
Quarter: 2008Q3

REPORT INFORMATION
  Report Type: 
  Country: None (occurrence: None)
  Receive Date: 20080702
  Receipt Date: 20070615
  Transmission Date: 20090109
  Serious: Yes (Other)
  Sender: FDA-Public Use
  Company Number: 502593

PATIENT
  Age: 68 Year
  Sex: Female

DRUGS (6)
  1. KLONOPIN [Suspect]
     Indication: PANIC ATTACK
     Dosage: 0.5 MG 2 PER DAY
     Dates: start: 20070201, end: 20070427
  2. KLONOPIN [Suspect]
     Indication: PANIC ATTACK
     Dosage: 2 DOSE FORM 1 PER PRN
     Dates: start: 20070126, end: 20070427
  3. CLONAZEPAM [Suspect]
     Indication: PANIC DISORDER
     Dosage: 0.5 MG 2 PER DAY
  4. CLONAZEPAM [Suspect]
     Indication: PANIC ATTACK
  5. UNSPECIFIED DRUG (GENERIC UNKNOWN) [Suspect]
     Indication: PANIC DISORDER
     Dosage: 0.5 MG 2 PER DAY
  6. KEPPRA [Suspect]
     Indication: CONVULSION
     Dosage: 250 MG 2 PER DAY

REACTIONS (17)
  - AGGRESSION [None]
  - CONCUSSION [None]
  - CONVULSION [None]
  - DIZZINESS [None]
  - DYSARTHRIA [None]
  - DYSPHASIA [None]
  - FALL [None]
  - HALLUCINATION [None]
  - HALLUCINATION, VISUAL [None]
  - HEADACHE [None]
  - INSOMNIA [None]
  - NAUSEA [None]
  - SLEEP DISORDER [None]
  - SYNCOPE [None]
  - THINKING ABNORMAL [None]
  - TREMOR [None]
  - VISION BLURRED [None]
